FAERS Safety Report 6594371-8 (Version None)
Quarter: 2010Q1

REPORT INFORMATION
  Report Type: 
  Country: None (occurrence: None)
  Receive Date: 20100222
  Receipt Date: 20100216
  Transmission Date: 20100710
  Serious: Yes (Life-Threatening, Hospitalization, Other)
  Sender: FDA-Public Use
  Company Number: A0840152B

PATIENT
  Sex: Male
  Weight: 2.5 kg

DRUGS (5)
  1. LAMICTAL [Suspect]
     Indication: EPILEPSY
     Dosage: 700MG TWICE PER DAY
  2. FOLIC ACID [Concomitant]
  3. VITAMIN AND MINERAL PRENATAL SUPPLEMENT W/ FOLIC ACID CAP [Concomitant]
  4. TERBUTALINE SULFATE [Concomitant]
  5. STEROID [Concomitant]

REACTIONS (7)
  - CYANOSIS NEONATAL [None]
  - DEPRESSED LEVEL OF CONSCIOUSNESS [None]
  - DRUG EXPOSURE DURING PREGNANCY [None]
  - GRUNTING [None]
  - INFANTILE APNOEIC ATTACK [None]
  - NEONATAL RESPIRATORY DEPRESSION [None]
  - NEONATAL RESPIRATORY DISTRESS SYNDROME [None]
